FAERS Safety Report 5611747-3 (Version None)
Quarter: 2008Q1

REPORT INFORMATION
  Report Type: 
  Country: None (occurrence: None)
  Receive Date: 20080204
  Receipt Date: 20080124
  Transmission Date: 20080703
  Serious: Yes (Other)
  Sender: FDA-Public Use
  Company Number: DE-BAYER-200717835GPV

PATIENT
  Sex: Female

DRUGS (1)
  1. MIRENA [Suspect]
     Indication: CONTRACEPTION
     Route: 015
     Dates: start: 20061004

REACTIONS (8)
  - AMENORRHOEA [None]
  - DEPRESSION [None]
  - IUD MIGRATION [None]
  - MENORRHAGIA [None]
  - NIGHTMARE [None]
  - PREGNANCY WITH CONTRACEPTIVE DEVICE [None]
  - RESTLESSNESS [None]
  - SLEEP DISORDER [None]
